FAERS Safety Report 11112561 (Version 2)
Quarter: 2015Q2

REPORT INFORMATION
  Report Type: Spontaneous
  Country: US (occurrence: US)
  Receive Date: 20150514
  Receipt Date: 20150514
  Transmission Date: 20150821
  Serious: No
  Sender: FDA-Public Use
  Company Number: US-ASTRAZENECA-2015SE38011

PATIENT
  Sex: Male

DRUGS (2)
  1. LEVEMIR [Concomitant]
     Active Substance: INSULIN DETEMIR
     Indication: ACQUIRED LIPOATROPHIC DIABETES
  2. BYDUREON [Suspect]
     Active Substance: EXENATIDE
     Indication: TYPE 2 DIABETES MELLITUS
     Dosage: 2 MG 4 COUNT, UNKNOWN
     Route: 058

REACTIONS (2)
  - Injection site extravasation [Unknown]
  - Underdose [Unknown]
